FAERS Safety Report 8281310-7 (Version None)
Quarter: 2012Q2

REPORT INFORMATION
  Report Type: 
  Country: None (occurrence: None)
  Receive Date: 20120413
  Receipt Date: 20120410
  Transmission Date: 20120825
  Serious: No
  Sender: FDA-Public Use
  Company Number: US-PFIZER INC-2012053439

PATIENT
  Sex: Female
  Weight: 59 kg

DRUGS (2)
  1. CHANTIX [Suspect]
     Indication: SMOKING CESSATION THERAPY
     Dosage: 0.5 MG, DAILY
     Dates: start: 20120201, end: 20120209
  2. AMLODIPINE [Concomitant]

REACTIONS (5)
  - MALAISE [None]
  - DRUG INTOLERANCE [None]
  - ARTHRALGIA [None]
  - MYALGIA [None]
  - NAUSEA [None]
